FAERS Safety Report 25571796 (Version 2)
Quarter: 2025Q3

REPORT INFORMATION
  Report Type: Spontaneous
  Country: EU (occurrence: EU)
  Receive Date: 20250717
  Receipt Date: 20250722
  Transmission Date: 20251020
  Serious: Yes (Death, Life-Threatening, Other)
  Sender: PFIZER
  Company Number: EU-shionogi-202500006570

PATIENT
  Age: 66 Year
  Sex: Male

DRUGS (23)
  1. LINEZOLID [Suspect]
     Active Substance: LINEZOLID
  2. HYDROCORTISONE [Suspect]
     Active Substance: HYDROCORTISONE
  3. LORAZEPAM [Suspect]
     Active Substance: LORAZEPAM
  4. MEROPENEM [Suspect]
     Active Substance: MEROPENEM
  5. PANTOPRAZOLE [Suspect]
     Active Substance: PANTOPRAZOLE
  6. ALBUMIN HUMAN [Suspect]
     Active Substance: ALBUMIN HUMAN
  7. PHYTONADIONE [Suspect]
     Active Substance: PHYTONADIONE
  8. SODIUM PHOSPHATE [Suspect]
     Active Substance: SODIUM PHOSPHATE
  9. CEFIDEROCOL [Suspect]
     Active Substance: CEFIDEROCOL
     Dosage: 2 G, 3X/DAY OUTFLOW RATE OF 6 L/H
     Dates: start: 20250620, end: 20250626
  10. NALDEMEDINE TOSYLATE [Suspect]
     Active Substance: NALDEMEDINE TOSYLATE
  11. BISOPROLOL [Suspect]
     Active Substance: BISOPROLOL
  12. LEVOTHYROXINE SODIUM [Suspect]
     Active Substance: LEVOTHYROXINE SODIUM
  13. CHOLESTYRAMINE [Suspect]
     Active Substance: CHOLESTYRAMINE
  14. THIAMINE [Suspect]
     Active Substance: THIAMINE
  15. NOREPINEPHRINE [Suspect]
     Active Substance: NOREPINEPHRINE
  16. HYDROMORPHONE [Suspect]
     Active Substance: HYDROMORPHONE
  17. BUTYLSCOPOLAMINE [Suspect]
     Active Substance: BUTYLSCOPOLAMINE
  18. DIMETHINDENE [Suspect]
     Active Substance: DIMETHINDENE
  19. GRANISETRON [Suspect]
     Active Substance: GRANISETRON
  20. TROSPIUM [Suspect]
     Active Substance: TROSPIUM
  21. URSODIOL [Suspect]
     Active Substance: URSODIOL
  22. CALCIUM CHLORIDE\MAGNESIUM CHLORIDE\POTASSIUM CHLORIDE\SODIUM ACETATE\ [Suspect]
     Active Substance: CALCIUM CHLORIDE\MAGNESIUM CHLORIDE\POTASSIUM CHLORIDE\SODIUM ACETATE\SODIUM CHLORIDE
  23. MCP [Suspect]
     Active Substance: METOCLOPRAMIDE HYDROCHLORIDE

REACTIONS (2)
  - Death [Fatal]
  - Toxic epidermal necrolysis [Unknown]

NARRATIVE: CASE EVENT DATE: 20250623
